FAERS Safety Report 21765546 (Version 1)
Quarter: 2022Q4

REPORT INFORMATION
  Report Type: Spontaneous
  Country: NL (occurrence: NL)
  Receive Date: 20221222
  Receipt Date: 20221222
  Transmission Date: 20230113
  Serious: Yes (Other)
  Sender: FDA-Public Use
  Company Number: NL-LRB-00855486

PATIENT
  Sex: Male
  Weight: 83.8 kg

DRUGS (5)
  1. FUROSEMIDE [Suspect]
     Active Substance: FUROSEMIDE
     Indication: Hypervolaemia
     Dosage: 40 MILLIGRAM, ONCE A DAY
     Route: 065
     Dates: start: 20221122, end: 20221124
  2. DIGOXIN [Concomitant]
     Active Substance: DIGOXIN
     Indication: Product used for unknown indication
     Dosage: 0.25 MILLIGRAM
     Route: 065
  3. HYDROCHLOROTHIAZIDE\METOPROLOL [Concomitant]
     Active Substance: HYDROCHLOROTHIAZIDE\METOPROLOL
     Indication: Product used for unknown indication
     Dosage: 1 DOSAGE FORM, ONCE A DAY (200 MG/DAG)
     Route: 065
  4. FLUCLOXACILLIN [Concomitant]
     Active Substance: FLUCLOXACILLIN
     Indication: Product used for unknown indication
     Dosage: 1 MILLIGRAM
     Route: 065
  5. PREDNISOLONE [Concomitant]
     Active Substance: PREDNISOLONE
     Indication: Product used for unknown indication
     Dosage: 5 MILLIGRAM
     Route: 065

REACTIONS (2)
  - Delirium [Recovered/Resolved]
  - Hypokalaemia [Recovered/Resolved]
